FAERS Safety Report 13230084 (Version 4)
Quarter: 2017Q3

REPORT INFORMATION
  Report Type: Spontaneous
  Country: US (occurrence: US)
  Receive Date: 20170214
  Receipt Date: 20170922
  Transmission Date: 20171127
  Serious: No
  Sender: FDA-Public Use
  Company Number: US-PFIZER INC-2017063397

PATIENT
  Age: 7 Year
  Sex: Female
  Weight: 48.8 kg

DRUGS (26)
  1. COENZYME Q10 [Concomitant]
     Active Substance: UBIDECARENONE
     Dosage: 5 ML, DAILY
     Route: 048
  2. GENOTROPIN MQ [Suspect]
     Active Substance: SOMATROPIN
     Dosage: 0.8 MG, DAILY
     Dates: start: 201709
  3. SYNTHROID [Concomitant]
     Active Substance: LEVOTHYROXINE SODIUM
     Dosage: UNK UNK, DAILY (1/2 TABLET BY MOUTH EVERY DAY)
     Route: 048
     Dates: start: 20160920
  4. PROVIGIL [Concomitant]
     Active Substance: MODAFINIL
     Dosage: 100 MG, 1X/DAY
  5. PROBIOTIC [Concomitant]
     Active Substance: PROBIOTICS NOS
     Dosage: UNK
  6. VITAMIN D3 [Concomitant]
     Active Substance: CHOLECALCIFEROL
     Dosage: 1000 IU, UNK
     Route: 048
  7. CHILDREN^S MULTIVITAMIN [Concomitant]
     Dosage: 1 DF, UNK
     Route: 048
  8. GENOTROPIN MQ [Suspect]
     Active Substance: SOMATROPIN
     Dosage: 0.6 MG, 1X/DAY (NIGHTLY AT BEDTIME)
     Route: 058
     Dates: start: 20160217
  9. GENOTROPIN MQ [Suspect]
     Active Substance: SOMATROPIN
     Indication: GROWTH HORMONE DEFICIENCY
     Dosage: 0.6 MG, DAILY [AT BEDTIME]
     Dates: start: 200903
  10. GENOTROPIN MQ [Suspect]
     Active Substance: SOMATROPIN
     Dosage: 0.4MG 5X/WEEK, 0.2MG 2X/WEEK
  11. LEVOTHROID [Concomitant]
     Active Substance: LEVOTHYROXINE SODIUM
     Dosage: UNK UNK, DAILY (1/2 TABLET BY MOUTH EVERY DAY)
     Route: 048
     Dates: start: 20160920
  12. POLY-VI-SOL [Concomitant]
     Active Substance: VITAMINS
     Dosage: 1ML, DAILY
     Route: 048
  13. VITAMIN D [Concomitant]
     Active Substance: CHOLECALCIFEROL
     Dosage: UNK
  14. GENOTROPIN MQ [Suspect]
     Active Substance: SOMATROPIN
     Indication: PRADER-WILLI SYNDROME
     Dosage: 0.6 MG, 1X/DAY (NIGHTLY AT BEDTIME)
     Route: 058
     Dates: start: 20150331
  15. COENZYME Q10 [Concomitant]
     Active Substance: UBIDECARENONE
     Dosage: 50 MG, DAILY
     Route: 048
  16. CARNITOR [Concomitant]
     Active Substance: LEVOCARNITINE
     Dosage: 0.05ML, DAILY
     Route: 048
     Dates: start: 20150326
  17. SYNTHROID [Concomitant]
     Active Substance: LEVOTHYROXINE SODIUM
     Dosage: UNK UNK, DAILY (1/2 TABLET BY MOUTH EVERY DAY)
     Route: 048
     Dates: start: 20160516
  18. LEVOTHROID [Concomitant]
     Active Substance: LEVOTHYROXINE SODIUM
     Dosage: 0.5 DF, DAILY [0.5 TABLETS]
     Route: 048
     Dates: start: 20150326
  19. CARNITOR [Concomitant]
     Active Substance: LEVOCARNITINE
     Dosage: 20 ML, DAILY (1 GM/10ML SOLUTION)
     Route: 048
     Dates: start: 20161020
  20. SYNTHROID [Concomitant]
     Active Substance: LEVOTHYROXINE SODIUM
     Dosage: 0.5 DF, DAILY [0.5 TABLETS]
     Route: 048
     Dates: start: 20150326
  21. PROVIGIL [Concomitant]
     Active Substance: MODAFINIL
     Dosage: 100 MG, DAILY
     Route: 048
     Dates: start: 20170123
  22. DHA [Concomitant]
     Active Substance: DIETARY SUPPLEMENT
     Dosage: UNK
  23. LEVOTHROID [Concomitant]
     Active Substance: LEVOTHYROXINE SODIUM
     Dosage: UNK UNK, DAILY UNK (1/2 TABLET BY MOUTH EVERY DAY)
     Route: 048
     Dates: start: 20160516
  24. ENFAMIL NATALINS RX [Concomitant]
     Dosage: UNK UNK, DAILY (26 OUNCES TO 28 OUNCES/ DAY)
  25. VITAMIN B12 [Concomitant]
     Active Substance: CYANOCOBALAMIN
     Dosage: 1 ML, UNK (INTO THE SKIN EVERY 30 DAYS)
     Route: 058
     Dates: start: 20160502
  26. DESVENLAFAXINE SUCCINATE. [Concomitant]
     Active Substance: DESVENLAFAXINE SUCCINATE
     Dosage: 25 MG, DAILY
     Route: 048
     Dates: start: 20170407

REACTIONS (19)
  - Increased appetite [Unknown]
  - Condition aggravated [Unknown]
  - Disturbance in attention [Recovering/Resolving]
  - Weight increased [Unknown]
  - Onychophagia [Unknown]
  - Strabismus [Unknown]
  - Scoliosis [Recovering/Resolving]
  - Hypotonia [Unknown]
  - Anxiety [Not Recovered/Not Resolved]
  - Ear infection [Recovered/Resolved]
  - Obsessive-compulsive disorder [Not Recovered/Not Resolved]
  - Dermatillomania [Unknown]
  - Saliva altered [Unknown]
  - Bruxism [Unknown]
  - Tooth hypoplasia [Unknown]
  - Sensory disturbance [Unknown]
  - Pectus excavatum [Unknown]
  - Nail picking [Unknown]
  - Abnormal behaviour [Not Recovered/Not Resolved]

NARRATIVE: CASE EVENT DATE: 200911
